FAERS Safety Report 7780380-X (Version None)
Quarter: 2011Q3

REPORT INFORMATION
  Report Type: 
  Country: None (occurrence: None)
  Receive Date: 20110927
  Receipt Date: 20110915
  Transmission Date: 20111222
  Serious: Yes (Hospitalization)
  Sender: FDA-Public Use
  Company Number: ES-SANOFI-AVENTIS-2011SA050936

PATIENT
  Age: 13 Month

DRUGS (1)
  1. ERGOCALCIFEROL [Suspect]
     Route: 065

REACTIONS (11)
  - GROWTH RETARDATION [None]
  - HYPERCALCAEMIA [None]
  - ASTHENIA [None]
  - VOMITING [None]
  - RENAL IMPAIRMENT [None]
  - FAILURE TO THRIVE [None]
  - REFLEXES ABNORMAL [None]
  - OVERDOSE [None]
  - DECREASED APPETITE [None]
  - APATHY [None]
  - MALNUTRITION [None]
